FAERS Safety Report 4508741-2 (Version None)
Quarter: 2004Q4

REPORT INFORMATION
  Report Type: 
  Country: None (occurrence: None)
  Receive Date: 20041123
  Receipt Date: 20040625
  Transmission Date: 20050328
  Serious: No
  Sender: FDA-Public Use
  Company Number: 2004-02794

PATIENT
  Age: 41 Year
  Sex: Female
  Weight: 78.6 kg

DRUGS (6)
  1. BUPROPION HCL [Suspect]
     Dosage: 150MG VARIABLE DOSE
     Route: 048
     Dates: start: 20040526, end: 20040619
  2. NICORETTE [Concomitant]
     Route: 048
  3. M.V.I. [Concomitant]
  4. CALCIUM [Concomitant]
  5. MAGNESIUM [Concomitant]
  6. ASPIRIN [Concomitant]

REACTIONS (7)
  - BLOOD PRESSURE INCREASED [None]
  - CONSTIPATION [None]
  - FEELING COLD [None]
  - HEART RATE INCREASED [None]
  - INSOMNIA [None]
  - PANIC ATTACK [None]
  - PHARMACEUTICAL PRODUCT COMPLAINT [None]
